FAERS Safety Report 13705263 (Version 3)
Quarter: 2018Q2

REPORT INFORMATION
  Report Type: Spontaneous
  Country: FR (occurrence: FR)
  Receive Date: 20170630
  Receipt Date: 20180524
  Transmission Date: 20180711
  Serious: Yes (Hospitalization, Other)
  Sender: FDA-Public Use
  Company Number: FR-ACCORD-053132

PATIENT
  Age: 35 Year
  Sex: Female
  Weight: 77 kg

DRUGS (5)
  1. OXALIPLATIN. [Concomitant]
     Active Substance: OXALIPLATIN
     Indication: ADENOCARCINOMA
     Dates: start: 20170425
  2. FOLINIC ACID [Concomitant]
     Active Substance: LEUCOVORIN
     Indication: ADENOCARCINOMA
     Dates: start: 20170425
  3. IRINOTECAN [Concomitant]
     Active Substance: IRINOTECAN
     Indication: ADENOCARCINOMA
     Dates: start: 20170425
  4. FLUOROURACIL ACCORD [Suspect]
     Active Substance: FLUOROURACIL
     Indication: ADENOCARCINOMA
     Dosage: STRENGTH: 50 MG/ML,??FOURTH CURE OF CHEMOTHERAPY ON 30-JUN-2017
     Route: 042
     Dates: start: 20170425
  5. BEVACIZUMAB. [Concomitant]
     Active Substance: BEVACIZUMAB
     Indication: ADENOCARCINOMA
     Dates: start: 20170425

REACTIONS (7)
  - Coma [Unknown]
  - Fatigue [Unknown]
  - Mucosal inflammation [Unknown]
  - Alopecia [Not Recovered/Not Resolved]
  - Neuropathy peripheral [Unknown]
  - Hyperammonaemic encephalopathy [Recovered/Resolved]
  - Dihydropyrimidine dehydrogenase deficiency [Unknown]

NARRATIVE: CASE EVENT DATE: 201705
